FAERS Safety Report 6147908-7 (Version None)
Quarter: 2009Q2

REPORT INFORMATION
  Report Type: 
  Country: None (occurrence: None)
  Receive Date: 20090402
  Receipt Date: 20081216
  Transmission Date: 20091009
  Serious: No
  Sender: FDA-Public Use
  Company Number: 1000004604

PATIENT
  Age: 76 Year
  Sex: Female

DRUGS (3)
  1. BYSTOLIC [Suspect]
     Indication: BLOOD PRESSURE INCREASED
     Dosage: 5 MG (5 MG, 1 IN 1 D), ORAL
     Route: 048
     Dates: start: 20080911, end: 20081106
  2. MICARDIS HCT (HYDROCHLOROTHIAZIDE, TELMISARTAN) (HYDROCHLOROTHIAZIDE, [Concomitant]
  3. PRAVACHOL [Concomitant]

REACTIONS (2)
  - ABDOMINAL DISCOMFORT [None]
  - PAIN IN EXTREMITY [None]
